FAERS Safety Report 6020570-X (Version None)
Quarter: 2008Q4

REPORT INFORMATION
  Report Type: 
  Country: None (occurrence: None)
  Receive Date: 20081227
  Receipt Date: 20081219
  Transmission Date: 20090506
  Serious: No
  Sender: FDA-Public Use
  Company Number: US-JNJFOC-20081204852

PATIENT
  Sex: Male
  Weight: 127.01 kg

DRUGS (2)
  1. DURAGESIC-100 [Suspect]
     Indication: BACK PAIN
     Route: 062
  2. ROXICODONE [Concomitant]
     Indication: BACK PAIN
     Dosage: 1 TO 3 - AS NEEDED
     Route: 048

REACTIONS (12)
  - APPLICATION SITE REACTION [None]
  - BACK PAIN [None]
  - DIZZINESS [None]
  - DRUG INEFFECTIVE [None]
  - DRUG SCREEN NEGATIVE [None]
  - FEELING ABNORMAL [None]
  - HEADACHE [None]
  - INCORRECT DRUG ADMINISTRATION DURATION [None]
  - MICTURITION URGENCY [None]
  - PAIN [None]
  - PAINFUL RESPIRATION [None]
  - SEDATION [None]
